FAERS Safety Report 7260866-7 (Version None)
Quarter: 2011Q1

REPORT INFORMATION
  Report Type: 
  Country: None (occurrence: None)
  Receive Date: 20110130
  Receipt Date: 20101122
  Transmission Date: 20110831
  Serious: No
  Sender: FDA-Public Use
  Company Number: US-ABBOTT-10P-163-0687293-00

PATIENT
  Age: 56 Year
  Sex: Female

DRUGS (3)
  1. SYNTHROID [Concomitant]
     Indication: PRODUCT USED FOR UNKNOWN INDICATION
     Dosage: IN THE MORNING
  2. HUMIRA [Suspect]
     Indication: RHEUMATOID ARTHRITIS
     Dates: start: 20100801
  3. AMLODIPINE BESYLATE [Concomitant]
     Indication: BLOOD PRESSURE

REACTIONS (5)
  - FATIGUE [None]
  - MYALGIA [None]
  - PYREXIA [None]
  - ASTHENIA [None]
  - PAIN [None]
